FAERS Safety Report 4278634-7 (Version None)
Quarter: 2004Q1

REPORT INFORMATION
  Report Type: 
  Country: None (occurrence: None)
  Receive Date: 20040122
  Receipt Date: 20040122
  Transmission Date: 20041129
  Serious: Yes (Hospitalization)
  Sender: FDA-Public Use
  Company Number: None

PATIENT
  Sex: Male

DRUGS (3)
  1. CISPLATIN [Suspect]
     Indication: NASOPHARYNGEAL CANCER
     Dosage: D1; D22, D43
     Dates: start: 20031105
  2. CISPLATIN [Suspect]
     Indication: NASOPHARYNGEAL CANCER
     Dosage: D1; D22, D43
     Dates: start: 20031126
  3. CISPLATIN [Suspect]
     Indication: NASOPHARYNGEAL CANCER
     Dosage: D1; D22, D43
     Dates: start: 20031217

REACTIONS (1)
  - DYSPNOEA [None]
